FAERS Safety Report 4518259-9 (Version None)
Quarter: 2004Q4

REPORT INFORMATION
  Report Type: 
  Country: None (occurrence: None)
  Receive Date: 20041130
  Receipt Date: 20041117
  Transmission Date: 20050328
  Serious: Yes (Hospitalization)
  Sender: FDA-Public Use
  Company Number: 2004UW23797

PATIENT
  Age: 39 Year
  Sex: Female
  Weight: 58.967 kg

DRUGS (3)
  1. DIPRIVAN [Suspect]
     Indication: ANAESTHESIA
     Dosage: 300 MG IV
     Route: 042
     Dates: start: 20041117, end: 20041117
  2. CELEXA [Concomitant]
  3. MULTI-VITAMINS [Concomitant]

REACTIONS (7)
  - ANTICHOLINERGIC SYNDROME [None]
  - ASTHENIA [None]
  - COMA [None]
  - GENERALISED ERYTHEMA [None]
  - LETHARGY [None]
  - MYDRIASIS [None]
  - TREMOR [None]
